FAERS Safety Report 8571760-3 (Version None)
Quarter: 2012Q3

REPORT INFORMATION
  Report Type: 
  Country: None (occurrence: None)
  Receive Date: 20120806
  Receipt Date: 20120802
  Transmission Date: 20120928
  Serious: Yes (Other)
  Sender: FDA-Public Use
  Company Number: PHEH2006US11225

PATIENT
  Sex: Male
  Weight: 83.447 kg

DRUGS (21)
  1. AREDIA [Suspect]
  2. NEXIUM [Concomitant]
  3. HYDROCHLOROTHIAZDE TAB [Concomitant]
  4. ZOMETA [Suspect]
     Dates: end: 20051020
  5. VASOTEC [Concomitant]
  6. CLONIDINE [Concomitant]
     Dosage: 0.1 MG, UNK
     Route: 048
  7. AVANDIA [Concomitant]
  8. ACIPHEX [Concomitant]
  9. ASPIRIN [Concomitant]
  10. FELODIPINE [Concomitant]
  11. PLAVIX [Concomitant]
  12. ZOCOR [Concomitant]
  13. METFORMIN HYDROCHLORIDE [Concomitant]
  14. METOPROLOL TARTRATE [Concomitant]
  15. INSULIN [Suspect]
  16. DIOVAN [Concomitant]
  17. NORVASC [Concomitant]
  18. RESTORIL [Concomitant]
  19. ATIVAN [Concomitant]
     Dosage: 1 MG, UNK
     Route: 048
  20. MONOPRIL [Concomitant]
     Dosage: 10 MG, QD
     Route: 048
  21. ASPIRIN [Concomitant]

REACTIONS (51)
  - HYPERLIPIDAEMIA [None]
  - GASTROOESOPHAGEAL REFLUX DISEASE [None]
  - CARDIAC MURMUR [None]
  - EMPHYSEMA [None]
  - GINGIVAL INFECTION [None]
  - ATRIAL FIBRILLATION [None]
  - PERIVENTRICULAR LEUKOMALACIA [None]
  - LYMPHADENOPATHY [None]
  - CORONARY ARTERY DISEASE [None]
  - OSTEONECROSIS OF JAW [None]
  - OSTEITIS [None]
  - PLEURAL FIBROSIS [None]
  - AORTIC VALVE INCOMPETENCE [None]
  - TRICUSPID VALVE INCOMPETENCE [None]
  - MULTIPLE MYELOMA [None]
  - HYPERTENSION [None]
  - EXPOSED BONE IN JAW [None]
  - VIITH NERVE PARALYSIS [None]
  - THROMBOCYTOPENIA [None]
  - INTESTINAL OBSTRUCTION [None]
  - SWELLING [None]
  - DIZZINESS [None]
  - SYNCOPE [None]
  - PAIN [None]
  - CHRONIC OBSTRUCTIVE PULMONARY DISEASE [None]
  - RESPIRATORY ACIDOSIS [None]
  - RESPIRATORY FAILURE [None]
  - LUNG INFILTRATION [None]
  - ARTERIOSCLEROSIS [None]
  - ANXIETY [None]
  - TYPE 1 DIABETES MELLITUS [None]
  - DYSPNOEA EXERTIONAL [None]
  - HYPOAESTHESIA [None]
  - VISION BLURRED [None]
  - MYOCARDIAL INFARCTION [None]
  - GENERAL PHYSICAL HEALTH DETERIORATION [None]
  - HAEMORRHAGE [None]
  - LOSS OF CONSCIOUSNESS [None]
  - HYPOGLYCAEMIA [None]
  - CONVULSION [None]
  - ISCHAEMIA [None]
  - LEFT VENTRICULAR HYPERTROPHY [None]
  - PULMONARY VALVE INCOMPETENCE [None]
  - ANGINA PECTORIS [None]
  - MITRAL VALVE INCOMPETENCE [None]
  - DECREASED INTEREST [None]
  - BRONCHITIS CHRONIC [None]
  - IMPAIRED HEALING [None]
  - BONE LOSS [None]
  - ATELECTASIS [None]
  - OSTEOMYELITIS BACTERIAL [None]
